FAERS Safety Report 14830918 (Version 1)
Quarter: 2018Q2

REPORT INFORMATION
  Report Type: Spontaneous
  Country: US (occurrence: US)
  Receive Date: 20180430
  Receipt Date: 20180430
  Transmission Date: 20180711
  Serious: No
  Sender: FDA-Public Use
  Company Number: US-009507513-1804USA004625

PATIENT
  Age: 73 Year
  Sex: Female

DRUGS (2)
  1. INTRON A [Suspect]
     Active Substance: INTERFERON ALFA-2B
     Indication: OCULAR NEOPLASM
     Dosage: 3000U/0.5ML, WEEKLY
  2. INTRON A [Suspect]
     Active Substance: INTERFERON ALFA-2B
     Dosage: 8000U/0.5ML, WEEKLY

REACTIONS (1)
  - Off label use [Unknown]
